FAERS Safety Report 6753026-7 (Version None)
Quarter: 2010Q2

REPORT INFORMATION
  Report Type: 
  Country: None (occurrence: None)
  Receive Date: 20100602
  Receipt Date: 20100602
  Transmission Date: 20101027
  Serious: Yes (Other)
  Sender: FDA-Public Use
  Company Number: None

PATIENT
  Age: 70 Year
  Sex: Female
  Weight: 64.4108 kg

DRUGS (1)
  1. RECLAST [Suspect]
     Indication: OSTEOPENIA
     Dosage: .5MG ONCE/YEAR IV INFUSION
     Route: 042
     Dates: start: 20100507

REACTIONS (4)
  - ARTHRALGIA [None]
  - BONE PAIN [None]
  - MYALGIA [None]
  - OEDEMA PERIPHERAL [None]
